FAERS Safety Report 9541786 (Version 1)
Quarter: 2013Q3

REPORT INFORMATION
  Report Type: Spontaneous
  Country: GB (occurrence: None)
  Receive Date: 20130918
  Receipt Date: 20130918
  Transmission Date: 20140515
  Serious: Yes (Hospitalization, Other)
  Sender: FDA-Public Use
  Company Number: AUR-APL-2013-07568

PATIENT
  Age: 71 Year
  Sex: Female

DRUGS (7)
  1. CEFALEXIN [Suspect]
     Indication: LOWER RESPIRATORY TRACT INFECTION
     Dosage: 750 MG (250 MG,3 IN 1 D)
     Route: 048
     Dates: start: 201302
  2. CO-AMLOFRUSE (FRUMIL) [Concomitant]
  3. CO-CODAMOL (PANADEINE CO) [Concomitant]
  4. FOLIC ACID (FOLIC ACID) [Concomitant]
  5. METHOTREXATE (METHOTREXATE) [Concomitant]
  6. SERETIDE (SERTIDE) [Concomitant]
  7. TIOTROPIUM BROMIDE (TIOTROPIUM BROMIDE) [Concomitant]

REACTIONS (4)
  - Treatment failure [None]
  - Malaise [None]
  - Pneumonia [None]
  - Systemic inflammatory response syndrome [None]
